FAERS Safety Report 8488248-0 (Version None)
Quarter: 2012Q2

REPORT INFORMATION
  Report Type: 
  Country: None (occurrence: None)
  Receive Date: 20120620
  Receipt Date: 20120518
  Transmission Date: 20120825
  Serious: Yes (Hospitalization)
  Sender: FDA-Public Use
  Company Number: 2012032351

PATIENT
  Age: 18 Year
  Sex: Female

DRUGS (1)
  1. HUMATE-P [Suspect]
     Dosage: (1839 IU QD INTRAVENOUS (NOT OTHERWISE SPECIFIED))
     Route: 042
     Dates: start: 20120512, end: 20120512

REACTIONS (4)
  - UNDERDOSE [None]
  - MEDICATION ERROR [None]
  - DRUG ADMINISTRATION ERROR [None]
  - INCORRECT DOSE ADMINISTERED [None]
